FAERS Safety Report 15563601 (Version 2)
Quarter: 2020Q3

REPORT INFORMATION
  Report Type: Spontaneous
  Country: US (occurrence: US)
  Receive Date: 20181029
  Receipt Date: 20200827
  Transmission Date: 20201102
  Serious: No
  Sender: FDA-Public Use
  Company Number: US-SA-2018SA297468

PATIENT

DRUGS (2)
  1. DUPIXENT [Suspect]
     Active Substance: DUPILUMAB
     Indication: DERMATITIS ATOPIC
     Dosage: 600 MG, 1X
     Route: 058
     Dates: start: 201808, end: 201808
  2. DUPIXENT [Suspect]
     Active Substance: DUPILUMAB
     Indication: ECZEMA
     Dosage: 300 MG, QOW
     Route: 058

REACTIONS (5)
  - Ocular hyperaemia [Unknown]
  - Pruritus [Not Recovered/Not Resolved]
  - Eyelid margin crusting [Unknown]
  - Dry skin [Not Recovered/Not Resolved]
  - Eye pruritus [Unknown]

NARRATIVE: CASE EVENT DATE: 2018
